FAERS Safety Report 7054125-5 (Version None)
Quarter: 2010Q4

REPORT INFORMATION
  Report Type: 
  Country: None (occurrence: None)
  Receive Date: 20101014
  Receipt Date: 20100929
  Transmission Date: 20110411
  Serious: Yes (Hospitalization)
  Sender: FDA-Public Use
  Company Number: TCI2010A03678

PATIENT
  Age: 73 Year
  Sex: Female

DRUGS (13)
  1. TAKEPRON CAPSULES 30 (LANSOPRAZOLE) [Suspect]
     Route: 048
     Dates: start: 20091101
  2. RHEUMATREX [Concomitant]
  3. NAUZELIN (DOMOPERIDONE) [Concomitant]
  4. MERISLON (BETAHISTINE HYDROCHLORIDE) [Concomitant]
  5. SELBEX (TEPRENONE) [Concomitant]
  6. GLYBURIDE [Concomitant]
  7. PRAVASTATIN [Concomitant]
  8. PLETAL [Concomitant]
  9. FOSAMAC (ALENDRONATE SODIUM) [Concomitant]
  10. VOLTAREN [Concomitant]
  11. ASPIRIN [Concomitant]
  12. YODEL-S (SENNA ALEXANDRINA) [Concomitant]
  13. ONEALFA (ALFACALCIDOL) [Concomitant]

REACTIONS (4)
  - BLOOD GLUCOSE INCREASED [None]
  - CARDIOVASCULAR DISORDER [None]
  - PURULENCE [None]
  - WHITE BLOOD CELL COUNT INCREASED [None]
